FAERS Safety Report 6522901-0 (Version None)
Quarter: 2009Q4

REPORT INFORMATION
  Report Type: 
  Country: None (occurrence: None)
  Receive Date: 20091222
  Receipt Date: 20091208
  Transmission Date: 20100525
  Serious: Yes (Death, Life-Threatening)
  Sender: FDA-Public Use
  Company Number: S08-DEN-00939-01

PATIENT
  Age: 36 Year
  Sex: Female

DRUGS (6)
  1. CITALOPRAM HYDROBROMIDE [Suspect]
     Indication: DEPRESSION
     Dosage: 30 MG (30 MG, 1 IN 1 D),ORAL; 6MG, (60 MG, 1 IN 1 D), ORAL
     Route: 048
     Dates: start: 20010601, end: 20030101
  2. CITALOPRAM HYDROBROMIDE [Suspect]
     Indication: DEPRESSION
     Dosage: 30 MG (30 MG, 1 IN 1 D),ORAL; 6MG, (60 MG, 1 IN 1 D), ORAL
     Route: 048
     Dates: start: 20030101
  3. SEROQUEL [Suspect]
     Dosage: ORAL
     Route: 048
     Dates: start: 20030101
  4. VALPROATE SODIUM [Suspect]
     Dosage: 1000 MG (1000 MG, 1 IN 1 D), ORAL
     Route: 048
     Dates: start: 20030101
  5. LAMICTAL [Suspect]
     Dosage: 350 MG (350 MG, 1 IN 1 D), ORAL
     Route: 048
     Dates: start: 20030101
  6. MINULET (FEMODENE) (TABLETS) [Suspect]
     Indication: ORAL CONTRACEPTION
     Dosage: 1 DOSAGE FORMS (1 DOSAGE FORMS, 1 IN 1 D) , ORAL
     Route: 048

REACTIONS (20)
  - AORTIC VALVE SCLEROSIS [None]
  - ARTERIOSCLEROSIS [None]
  - ARTERIOSCLEROSIS CORONARY ARTERY [None]
  - BRAIN OEDEMA [None]
  - CARDIAC ARREST [None]
  - CONJUNCTIVAL HAEMORRHAGE [None]
  - DIZZINESS [None]
  - DRUG INTERACTION [None]
  - DRUG TOXICITY [None]
  - DYSPNOEA [None]
  - ENCEPHALITIS [None]
  - HEPATOMEGALY [None]
  - MALAISE [None]
  - MUSCLE HAEMORRHAGE [None]
  - PALPITATIONS [None]
  - PULMONARY HAEMORRHAGE [None]
  - PULMONARY OEDEMA [None]
  - RENAL DISORDER [None]
  - TACHYCARDIA [None]
  - THYROIDITIS [None]
